FAERS Safety Report 6710035-1 (Version None)
Quarter: 2010Q2

REPORT INFORMATION
  Report Type: 
  Country: None (occurrence: None)
  Receive Date: 20100504
  Receipt Date: 20100422
  Transmission Date: 20101027
  Serious: Yes (Hospitalization)
  Sender: FDA-Public Use
  Company Number: GB-PFIZER INC-2010051021

PATIENT
  Sex: Male

DRUGS (3)
  1. BLINDED *NO SUBJECT DRUG [Suspect]
     Indication: CARDIAC FAILURE
  2. BLINDED *PLACEBO [Suspect]
     Indication: CARDIAC FAILURE
  3. BLINDED EPLERENONE [Suspect]
     Indication: CARDIAC FAILURE

REACTIONS (1)
  - VENTRICULAR TACHYCARDIA [None]
